FAERS Safety Report 4898013-9 (Version None)
Quarter: 2006Q1

REPORT INFORMATION
  Report Type: 
  Country: None (occurrence: None)
  Receive Date: 20060201
  Receipt Date: 20060124
  Transmission Date: 20060701
  Serious: Yes (Disabling)
  Sender: FDA-Public Use
  Company Number: US-ROCHE-433389

PATIENT
  Age: 58 Year
  Sex: Male
  Weight: 93 kg

DRUGS (4)
  1. PEGASYS [Suspect]
     Indication: HEPATITIS C
     Dosage: DOSAGE REGIMEN REPORTED AS 180MCG PER WEEK
     Route: 065
     Dates: start: 20050315, end: 20050515
  2. COPEGUS [Suspect]
     Indication: HEPATITIS C
     Route: 065
     Dates: start: 20050315, end: 20050515
  3. ATENOLOL [Concomitant]
     Indication: HYPERTENSION
  4. ANTIHYPERTENSIVE MEDICATION NOS [Concomitant]
     Indication: HYPERTENSION

REACTIONS (3)
  - CATARACT [None]
  - DEAFNESS [None]
  - PIGMENTATION DISORDER [None]
